FAERS Safety Report 13065349 (Version 2)
Quarter: 2017Q1

REPORT INFORMATION
  Report Type: Spontaneous
  Country: US (occurrence: US)
  Receive Date: 20161227
  Receipt Date: 20170315
  Transmission Date: 20170428
  Serious: No
  Sender: FDA-Public Use
  Company Number: US-009507513-1612USA004283

PATIENT
  Age: 20 Year
  Sex: Female
  Weight: 97.51 kg

DRUGS (2)
  1. NEXPLANON [Suspect]
     Active Substance: ETONOGESTREL
     Indication: CONTRACEPTION
     Dosage: 68 MG/1 ROD EVERY 3 YEARS
     Route: 059
     Dates: start: 201511, end: 20170119
  2. NEXPLANON [Suspect]
     Active Substance: ETONOGESTREL
     Dosage: UNK
     Route: 059
     Dates: start: 2017

REACTIONS (4)
  - Device kink [Recovered/Resolved]
  - Product quality issue [Unknown]
  - No adverse event [Unknown]
  - Complication associated with device [Recovered/Resolved]

NARRATIVE: CASE EVENT DATE: 201511
